FAERS Safety Report 23070968 (Version 3)
Quarter: 2023Q4

REPORT INFORMATION
  Report Type: Spontaneous
  Country: US (occurrence: US)
  Receive Date: 20231016
  Receipt Date: 20231201
  Transmission Date: 20240110
  Serious: No
  Sender: FDA-Public Use
  Company Number: US-PFIZER INC-PV202300167826

PATIENT
  Age: 30 Year
  Sex: Male
  Weight: 78.4 kg

DRUGS (2)
  1. NURTEC ODT [Suspect]
     Active Substance: RIMEGEPANT SULFATE
     Indication: Migraine with aura
     Dosage: 1 DF, 1X/DAY AND REPEAT IN 2 DAYS
     Route: 048
  2. NURTEC ODT [Suspect]
     Active Substance: RIMEGEPANT SULFATE
     Dosage: 75 MG, 1X/DAY
     Route: 048
     Dates: start: 20231007

REACTIONS (2)
  - Drug ineffective [Unknown]
  - Specialist consultation [Unknown]
